FAERS Safety Report 5059266-X (Version None)
Quarter: 2006Q2

REPORT INFORMATION
  Report Type: 
  Country: None (occurrence: None)
  Receive Date: 20060629
  Receipt Date: 20060313
  Transmission Date: 20061013
  Serious: No
  Sender: FDA-Public Use
  Company Number: PHEH2006US03321

PATIENT
  Age: 82 Year
  Sex: Female

DRUGS (3)
  1. ENABLEX [Suspect]
     Indication: HYPERTONIC BLADDER
     Dosage: 7.5 MG, QD
     Dates: start: 20060310
  2. LONOX (ATROPINE SULFATE, DIPHENOXYLATE HYDROCHLORIDE) [Concomitant]
  3. NULEV (HYOSCYAMINE SULFATE) [Concomitant]

REACTIONS (3)
  - ABDOMINAL PAIN UPPER [None]
  - ANAL DISCOMFORT [None]
  - DRY MOUTH [None]
